FAERS Safety Report 4974998-7 (Version None)
Quarter: 2006Q2

REPORT INFORMATION
  Report Type: 
  Country: None (occurrence: None)
  Receive Date: 20060414
  Receipt Date: 20060414
  Transmission Date: 20061013
  Serious: Yes (Life-Threatening)
  Sender: FDA-Public Use
  Company Number: None

PATIENT
  Sex: Female

DRUGS (2)
  1. REGULAR INSULIN [Suspect]
     Indication: HYPERGLYCAEMIA
     Dosage: 10 UNITS   HOUR    IV DRIP
     Route: 041
     Dates: start: 20060314, end: 20060315
  2. ASCORBIC ACID [Concomitant]

REACTIONS (1)
  - HYPOGLYCAEMIA [None]
